FAERS Safety Report 4294666-7 (Version None)
Quarter: 2004Q1

REPORT INFORMATION
  Report Type: 
  Country: None (occurrence: None)
  Receive Date: 20040213
  Receipt Date: 20040202
  Transmission Date: 20041129
  Serious: Yes (Other)
  Sender: FDA-Public Use
  Company Number: GB-GLAXOSMITHKLINE-B0321957A

PATIENT
  Age: 27 Year
  Sex: Female
  Weight: 80 kg

DRUGS (2)
  1. ZYBAN [Suspect]
     Indication: EX-SMOKER
     Dosage: 150MG TWICE PER DAY
     Route: 048
     Dates: start: 20010302, end: 20010307
  2. ZOLADEX [Concomitant]
     Route: 065
     Dates: start: 20010301

REACTIONS (3)
  - HYPOAESTHESIA [None]
  - PANIC ATTACK [None]
  - SWOLLEN TONGUE [None]
